FAERS Safety Report 8572358-3 (Version None)
Quarter: 2012Q3

REPORT INFORMATION
  Report Type: 
  Country: None (occurrence: None)
  Receive Date: 20120806
  Receipt Date: 20120727
  Transmission Date: 20120928
  Serious: Yes (Hospitalization)
  Sender: FDA-Public Use
  Company Number: JP-ASTRAZENECA-2012SE53957

PATIENT
  Age: 75 Year
  Sex: Female

DRUGS (2)
  1. ZOMETA [Concomitant]
     Dosage: DOSE UNKNOWN
     Route: 042
  2. FASLODEX [Suspect]
     Indication: BREAST CANCER
     Route: 030

REACTIONS (3)
  - CELLULITIS [None]
  - INJECTION SITE CELLULITIS [None]
  - GAIT DISTURBANCE [None]
